FAERS Safety Report 8875546 (Version 5)
Quarter: 2013Q2

REPORT INFORMATION
  Report Type: Spontaneous
  Country: US (occurrence: US)
  Receive Date: 20121030
  Receipt Date: 20130621
  Transmission Date: 20140414
  Serious: Yes (Other)
  Sender: FDA-Public Use
  Company Number: US-JNJFOC-20121011613

PATIENT
  Age: 83 Year
  Sex: Male
  Weight: 79.38 kg

DRUGS (40)
  1. REMICADE [Suspect]
     Indication: CROHN^S DISEASE
     Route: 042
     Dates: start: 20120706
  2. REMICADE [Suspect]
     Indication: CROHN^S DISEASE
     Route: 042
     Dates: start: 20120606
  3. REMICADE [Suspect]
     Indication: CROHN^S DISEASE
     Route: 042
     Dates: start: 20120511
  4. REMICADE [Suspect]
     Indication: CROHN^S DISEASE
     Dosage: APPROXIMATE TOTAL NUMBER OF INFUSIONS PATIENT RECEIVED: 8DOSAGE ALSO REPORTED AS 400 MG
     Route: 042
     Dates: start: 20120330
  5. REMICADE [Suspect]
     Indication: CROHN^S DISEASE
     Route: 042
     Dates: start: 20121130
  6. REMICADE [Suspect]
     Indication: CROHN^S DISEASE
     Route: 042
     Dates: start: 20130330
  7. REMICADE [Suspect]
     Indication: CROHN^S DISEASE
     Route: 042
     Dates: start: 20130130
  8. REMICADE [Suspect]
     Indication: CROHN^S DISEASE
     Route: 042
     Dates: start: 20121012
  9. FAMCICLOVIR [Suspect]
     Indication: HERPES ZOSTER
     Route: 065
     Dates: start: 2012, end: 2012
  10. ASA [Concomitant]
     Route: 065
  11. IMDUR [Concomitant]
     Route: 065
  12. ZOCOR [Concomitant]
     Route: 065
  13. VITAMIN D [Concomitant]
     Dosage: WENESDAY
     Route: 065
  14. VITAMIN B 12 [Concomitant]
     Dosage: 1 SHOT/MONTH
     Route: 065
  15. I-CAP [Concomitant]
     Route: 065
  16. FLOMAX [Concomitant]
     Route: 065
  17. BOOST [Concomitant]
     Route: 065
  18. LIPITOR [Concomitant]
     Route: 065
  19. TESTOSTERONE [Concomitant]
     Route: 065
  20. TESTOSTERONE [Concomitant]
     Route: 065
  21. METAMUCIL [Concomitant]
     Dosage: FIBER
     Route: 065
  22. FISH OIL [Concomitant]
     Dosage: OMEGA-3
     Route: 065
  23. AGGRENOX [Concomitant]
     Route: 065
  24. PENTASA [Concomitant]
     Dosage: REDUCE BY I TAB 5TH OF ^EA^ MONTH START 05-JUL-2012
     Route: 065
     Dates: start: 20120705
  25. PERIDEX [Concomitant]
     Dosage: AS NEEDED
     Route: 065
  26. COUMADIN [Concomitant]
     Dosage: S-S
     Route: 065
  27. COUMADIN [Concomitant]
     Route: 065
  28. TIAZAC [Concomitant]
     Route: 065
  29. SYNTHROID [Concomitant]
     Route: 065
  30. NORTRIPTYLINE [Concomitant]
     Route: 065
  31. MENTHOL [Concomitant]
     Indication: COUGH
     Route: 065
  32. ACETAMINOPHEN [Concomitant]
     Dosage: AS NEEDED
     Route: 065
  33. PURINETHOL [Concomitant]
     Route: 065
  34. COLACE [Concomitant]
     Route: 065
  35. CALCIUM [Concomitant]
     Route: 065
  36. TYLENOL [Concomitant]
     Route: 065
  37. ALTACE [Concomitant]
     Route: 065
  38. MVI [Concomitant]
     Route: 065
  39. VITAMIN B6 [Concomitant]
     Route: 065
  40. VITAMIN D3 [Concomitant]
     Route: 065

REACTIONS (2)
  - Herpes zoster [Recovering/Resolving]
  - Ophthalmic herpes zoster [Recovered/Resolved]
